FAERS Safety Report 17286918 (Version 3)
Quarter: 2020Q3

REPORT INFORMATION
  Report Type: Spontaneous
  Country: JP (occurrence: JP)
  Receive Date: 20200120
  Receipt Date: 20200810
  Transmission Date: 20201102
  Serious: Yes (Life-Threatening)
  Sender: FDA-Public Use
  Company Number: JP-BRISTOL-MYERS SQUIBB COMPANY-BMS-2020-003778

PATIENT
  Age: 46 Year
  Sex: Female

DRUGS (2)
  1. INFLUENZA HA VACCINE [Interacting]
     Active Substance: INFLUENZA VIRUS VACCINE
     Indication: ANTIVIRAL PROPHYLAXIS
     Dosage: UNK
     Route: 042
  2. OPDIVO [Suspect]
     Active Substance: NIVOLUMAB
     Indication: GASTRIC CANCER
     Dosage: 240 MG
     Route: 041
     Dates: start: 20191016

REACTIONS (2)
  - Drug interaction [Unknown]
  - Pyrexia [Recovered/Resolved]
